FAERS Safety Report 7211075-9 (Version None)
Quarter: 2010Q4

REPORT INFORMATION
  Report Type: 
  Country: None (occurrence: None)
  Receive Date: 20101223
  Receipt Date: 20101213
  Transmission Date: 20110411
  Serious: Yes (Death)
  Sender: FDA-Public Use
  Company Number: 08-232

PATIENT
  Age: 52 Year
  Sex: Male

DRUGS (1)
  1. FAZACLO ODT [Suspect]
     Indication: PRODUCT USED FOR UNKNOWN INDICATION
     Dosage: 500 MG DAILY PO
     Route: 048
     Dates: start: 20070225, end: 20081028

REACTIONS (1)
  - ACUTE MYOCARDIAL INFARCTION [None]
